FAERS Safety Report 21600169 (Version 1)
Quarter: 2022Q4

REPORT INFORMATION
  Report Type: Spontaneous
  Country: GB (occurrence: GB)
  Receive Date: 20221116
  Receipt Date: 20221116
  Transmission Date: 20230112
  Serious: Yes (Other)
  Sender: FDA-Public Use
  Company Number: None

PATIENT
  Age: 59 Year
  Sex: Female

DRUGS (5)
  1. VENLAFAXINE [Suspect]
     Active Substance: VENLAFAXINE HYDROCHLORIDE
     Dosage: 3.75 MG RISING TO 150 MG BY OCTOBER
     Dates: start: 202210
  2. VENLAFAXINE [Suspect]
     Active Substance: VENLAFAXINE HYDROCHLORIDE
     Dosage: 3.75 MG RISING TO 150 MG BY OCTOBER
     Dates: start: 20220811
  3. BISOPROLOL [Concomitant]
     Active Substance: BISOPROLOL
  4. ESTRADIOL\NORETHINDRONE ACETATE [Concomitant]
     Active Substance: ESTRADIOL\NORETHINDRONE ACETATE
  5. ZOPICLONE [Concomitant]
     Active Substance: ZOPICLONE

REACTIONS (3)
  - Urinary retention [Not Recovered/Not Resolved]
  - Loss of bladder sensation [Unknown]
  - Urinary straining [Unknown]

NARRATIVE: CASE EVENT DATE: 20220818
